FAERS Safety Report 8896274 (Version 1)
Quarter: 2012Q4

REPORT INFORMATION
  Report Type: Spontaneous
  Country: US (occurrence: None)
  Receive Date: 20121106
  Receipt Date: 20121106
  Transmission Date: 20130627
  Serious: Yes (Other)
  Sender: FDA-Public Use
  Company Number: None

PATIENT
  Age: 67 Year
  Sex: Female
  Weight: 61.24 kg

DRUGS (1)
  1. NITROFURANTOIN [Suspect]
     Indication: RECURRENT UTI
     Route: 048
     Dates: start: 20121021, end: 20121026

REACTIONS (15)
  - Nausea [None]
  - Headache [None]
  - Pain [None]
  - Chills [None]
  - Pyrexia [None]
  - Burning sensation [None]
  - Chest discomfort [None]
  - Myalgia [None]
  - Muscle tightness [None]
  - Arthralgia [None]
  - Petechiae [None]
  - Nausea [None]
  - Cough [None]
  - Dysphonia [None]
  - Respiratory tract congestion [None]
